FAERS Safety Report 13498711 (Version 1)
Quarter: 2017Q2

REPORT INFORMATION
  Report Type: Spontaneous
  Country: US (occurrence: US)
  Receive Date: 20170428
  Receipt Date: 20170428
  Transmission Date: 20170830
  Serious: Yes (Other)
  Sender: FDA-Public Use
  Company Number: None

PATIENT
  Age: 72 Year
  Sex: Female
  Weight: 51.3 kg

DRUGS (6)
  1. VITAMIN C [Concomitant]
     Active Substance: ASCORBIC ACID
  2. LEVAQUIN [Suspect]
     Active Substance: LEVOFLOXACIN
     Indication: SINUSITIS
     Route: 048
     Dates: start: 20141114, end: 20141124
  3. SELENIUM [Concomitant]
     Active Substance: SELENIUM
  4. KRILL OIL [Concomitant]
     Active Substance: DIETARY SUPPLEMENT
  5. VIT. D [Concomitant]
  6. HAWTHORN [Concomitant]
     Active Substance: CRATAEGUS LAEVIGATA FRUIT

REACTIONS (8)
  - Tendon injury [None]
  - Neuropathy peripheral [None]
  - Asthenia [None]
  - Myalgia [None]
  - Headache [None]
  - Feeling abnormal [None]
  - Nightmare [None]
  - Aortic aneurysm [None]
